FAERS Safety Report 9720283 (Version 1)
Quarter: 2013Q4

REPORT INFORMATION
  Report Type: Spontaneous
  Country: US (occurrence: US)
  Receive Date: 20131129
  Receipt Date: 20131129
  Transmission Date: 20140711
  Serious: No
  Sender: FDA-Public Use
  Company Number: US-BIOGENIDEC-2013BI112336

PATIENT
  Sex: Female

DRUGS (2)
  1. AVONEX [Suspect]
     Indication: MULTIPLE SCLEROSIS
     Route: 030
     Dates: start: 19990701
  2. AVONEX [Suspect]
     Indication: MULTIPLE SCLEROSIS
     Route: 030
     Dates: start: 20130815

REACTIONS (7)
  - Tremor [Unknown]
  - Retching [Unknown]
  - Migraine [Recovered/Resolved]
  - Influenza like illness [Recovered/Resolved]
  - Pyrexia [Unknown]
  - Vomiting [Unknown]
  - Pain [Unknown]
